FAERS Safety Report 4449763-X (Version None)
Quarter: 2004Q3

REPORT INFORMATION
  Report Type: 
  Country: None (occurrence: None)
  Receive Date: 20040913
  Receipt Date: 20040831
  Transmission Date: 20050211
  Serious: Yes (Hospitalization)
  Sender: FDA-Public Use
  Company Number: S04-USA-02770-01

PATIENT
  Age: 37 Year
  Sex: Female

DRUGS (12)
  1. CELEXA [Suspect]
     Indication: BIPOLAR DISORDER
     Dosage: 120 MG QD PO
     Route: 048
     Dates: start: 20040401, end: 20040501
  2. CELEXA [Suspect]
     Indication: BIPOLAR DISORDER
     Dates: start: 20000601, end: 20030701
  3. CELEXA [Suspect]
     Indication: BIPOLAR DISORDER
     Dosage: 60 MG QD PO
     Route: 048
     Dates: start: 20030701, end: 20031201
  4. CELEXA [Suspect]
     Indication: BIPOLAR DISORDER
     Dosage: 100 MG QD PO
     Route: 048
     Dates: start: 20031201, end: 20040401
  5. CELEXA [Suspect]
     Indication: BIPOLAR DISORDER
     Dosage: 40 MG QD PO
     Route: 048
     Dates: start: 20040501, end: 20040501
  6. CELEXA [Suspect]
     Indication: BIPOLAR DISORDER
     Dosage: 80 MG QD PO
     Route: 048
     Dates: start: 20040501
  7. NEURONTIN [Concomitant]
  8. WELLBUTRIN [Concomitant]
  9. LORAZEPAM [Concomitant]
  10. ZYRTEC [Concomitant]
  11. FLONASE [Concomitant]
  12. MULTI-VITAMIN [Concomitant]

REACTIONS (23)
  - ABDOMINAL PAIN UPPER [None]
  - ANXIETY [None]
  - ASTHENIA [None]
  - BLOOD PRESSURE INCREASED [None]
  - DIZZINESS [None]
  - DYSPEPSIA [None]
  - EYELID PTOSIS [None]
  - FACIAL PALSY [None]
  - HAEMORRHAGIC STROKE [None]
  - HEADACHE [None]
  - HEMIPARESIS [None]
  - HYPERTENSIVE CRISIS [None]
  - INCONTINENCE [None]
  - MOVEMENT DISORDER [None]
  - MUSCLE CRAMP [None]
  - NAUSEA [None]
  - NUCLEAR MAGNETIC RESONANCE IMAGING BRAIN ABNORMAL [None]
  - SENSATION OF HEAVINESS [None]
  - SENSORY DISTURBANCE [None]
  - STRESS SYMPTOMS [None]
  - TONGUE DISORDER [None]
  - VISION BLURRED [None]
  - VOMITING [None]
